FAERS Safety Report 14491459 (Version 6)
Quarter: 2018Q2

REPORT INFORMATION
  Report Type: Report from Study
  Country: IL (occurrence: IL)
  Receive Date: 20180206
  Receipt Date: 20180407
  Transmission Date: 20180711
  Serious: Yes (Life-Threatening, Hospitalization, Other)
  Sender: FDA-Public Use
  Company Number: IL-AMGEN-ISRSL2018005739

PATIENT
  Age: 77 Year
  Sex: Male

DRUGS (1)
  1. NPLATE [Suspect]
     Active Substance: ROMIPLOSTIM
     Indication: IMMUNE THROMBOCYTOPENIC PURPURA
     Dosage: 280 MUG, UNK
     Route: 065
     Dates: start: 20170427

REACTIONS (15)
  - Neutropenia [Recovering/Resolving]
  - White blood cell count decreased [Recovering/Resolving]
  - Urinary tract infection bacterial [Recovering/Resolving]
  - Necrotising oesophagitis [Recovering/Resolving]
  - Bacterial sepsis [Recovering/Resolving]
  - Haemoglobin decreased [Recovering/Resolving]
  - Haemodynamic instability [Recovering/Resolving]
  - Haemorrhage urinary tract [Recovered/Resolved]
  - Bladder candidiasis [Recovering/Resolving]
  - Haematuria [Recovered/Resolved]
  - Oesophageal infection [Recovering/Resolving]
  - Renal failure [Unknown]
  - Epididymal disorder [Recovering/Resolving]
  - Platelet count abnormal [Recovering/Resolving]
  - Hydronephrosis [Recovering/Resolving]

NARRATIVE: CASE EVENT DATE: 201801
